FAERS Safety Report 4270842-4 (Version None)
Quarter: 2004Q1

REPORT INFORMATION
  Report Type: 
  Country: None (occurrence: None)
  Receive Date: 20040113
  Receipt Date: 20040105
  Transmission Date: 20041129
  Serious: Yes (Hospitalization, Other)
  Sender: FDA-Public Use
  Company Number: USA-2003-0009872

PATIENT
  Age: 52 Year
  Sex: Male

DRUGS (5)
  1. OXYCONTIN [Suspect]
     Dosage: SEE TEXT
  2. NORCO [Concomitant]
  3. LORCET-HD [Concomitant]
  4. XANAX [Concomitant]
  5. KADIAN ^KNOLL^ [Concomitant]

REACTIONS (3)
  - DEAFNESS [None]
  - DRUG DEPENDENCE [None]
  - POLYSUBSTANCE ABUSE [None]
